FAERS Safety Report 10007369 (Version 2)
Quarter: 2014Q2

REPORT INFORMATION
  Report Type: Spontaneous
  Country: BR (occurrence: BR)
  Receive Date: 20140313
  Receipt Date: 20140423
  Transmission Date: 20141212
  Serious: Yes (Hospitalization, Other)
  Sender: FDA-Public Use
  Company Number: BR-GLAXOSMITHKLINE-A1064747A

PATIENT
  Age: 3 Month
  Sex: Female
  Weight: 7.5 kg

DRUGS (1)
  1. AEROLIN [Suspect]
     Indication: BRONCHOSPASM
     Dosage: 100MCG THREE TIMES PER DAY
     Route: 048
     Dates: start: 20140303, end: 20140303

REACTIONS (5)
  - Pertussis [Recovered/Resolved]
  - Cough [Recovered/Resolved]
  - Dyspnoea [Recovered/Resolved]
  - Erythema [Recovered/Resolved]
  - Cyanosis [Recovered/Resolved]
